FAERS Safety Report 8484463-0 (Version None)
Quarter: 2012Q3

REPORT INFORMATION
  Report Type: 
  Country: None (occurrence: None)
  Receive Date: 20120703
  Receipt Date: 20120628
  Transmission Date: 20120928
  Serious: Yes (Hospitalization, Other)
  Sender: FDA-Public Use
  Company Number: PHHY2012BR056254

PATIENT
  Sex: Female

DRUGS (13)
  1. CLONAZEPAM [Concomitant]
     Indication: INSOMNIA
     Dosage: 1 DF, UNK
     Route: 048
  2. ISOSORBIDE MONONITRATE [Concomitant]
     Indication: CARDIAC DISORDER
     Dosage: 2 DF, QD
     Route: 048
  3. AMLODIPINE BESYLATE [Concomitant]
     Dosage: 1 DF, QD
     Route: 048
  4. CLONIDINE HYDROCHLORIDE [Concomitant]
     Indication: CARDIAC DISORDER
     Dosage: 3 DF, QD
     Route: 048
     Dates: start: 20120602
  5. CLORANA [Concomitant]
     Indication: CARDIAC DISORDER
     Dosage: 1 DF, QD
     Route: 048
  6. TEGRETOL-XR [Suspect]
     Indication: CONVULSION
     Dosage: 1 DF, QD
     Route: 048
  7. LASIX [Concomitant]
     Indication: CARDIAC DISORDER
     Dosage: 1 DF, QD
     Route: 048
  8. OVESTRION [Concomitant]
     Indication: VAGINAL DISORDER
     Dosage: QW
  9. ASPIRIN [Concomitant]
     Indication: CARDIAC DISORDER
     Dosage: 2 DF, QD, AT LUNCH
     Route: 048
  10. CARVEDILOL [Concomitant]
     Indication: CARDIAC DISORDER
     Dosage: 2 DF, QD
     Route: 048
  11. CLOPIDOGREL [Concomitant]
     Indication: CARDIAC DISORDER
     Dosage: 1 DF, QD, AT LUNCH
     Route: 048
  12. NOOTROPIL [Concomitant]
     Indication: MEMORY IMPAIRMENT
     Dosage: 1 DF, QD
     Route: 048
  13. ATORVASTATIN [Concomitant]
     Indication: CARDIAC DISORDER
     Dosage: 2 DF, QD AT NIGHT
     Route: 048

REACTIONS (2)
  - HYPERTENSION [None]
  - PULMONARY OEDEMA [None]
